FAERS Safety Report 5506105-6 (Version None)
Quarter: 2007Q4

REPORT INFORMATION
  Report Type: 
  Country: None (occurrence: None)
  Receive Date: 20071105
  Receipt Date: 20071031
  Transmission Date: 20080405
  Serious: Yes (Life-Threatening, Hospitalization, Other)
  Sender: FDA-Public Use
  Company Number: FR-BRISTOL-MYERS SQUIBB COMPANY-13953658

PATIENT
  Age: 71 Year
  Sex: Female

DRUGS (1)
  1. SPRYCEL [Suspect]
     Indication: CHRONIC MYELOID LEUKAEMIA
     Dosage: INITIATED AT DAILY DOSE 140MG/D THEN AT 100MG/D FROM MAR 2007
     Dates: start: 20060626, end: 20070619

REACTIONS (2)
  - NERVE ROOT LESION [None]
  - NEUROPATHY PERIPHERAL [None]
